FAERS Safety Report 16228486 (Version 1)
Quarter: 2019Q2

REPORT INFORMATION
  Report Type: Spontaneous
  Country: US (occurrence: US)
  Receive Date: 20190422
  Receipt Date: 20190422
  Transmission Date: 20190711
  Serious: Yes (Hospitalization)
  Sender: FDA-Public Use
  Company Number: None

PATIENT
  Sex: Female
  Weight: 71.2 kg

DRUGS (11)
  1. VITAMIN D3 [Concomitant]
     Active Substance: CHOLECALCIFEROL
  2. CARVEDILOL. [Concomitant]
     Active Substance: CARVEDILOL
  3. TRELEGY ELLIPTA [Concomitant]
     Active Substance: FLUTICASONE FUROATE\UMECLIDINIUM BROMIDE\VILANTEROL TRIFENATATE
  4. IRON (FERROUS SULFATE) [Concomitant]
  5. REVLIMID [Concomitant]
     Active Substance: LENALIDOMIDE
     Dates: start: 20190402, end: 20190406
  6. ALBUTEROL. [Concomitant]
     Active Substance: ALBUTEROL
  7. MIRALAX [Concomitant]
     Active Substance: POLYETHYLENE GLYCOL 3350
  8. ASPIRIN 81 [Concomitant]
     Active Substance: ASPIRIN
  9. NIFEDIPINE. [Concomitant]
     Active Substance: NIFEDIPINE
  10. DEXAMETHASONE. [Suspect]
     Active Substance: DEXAMETHASONE
     Indication: PLASMA CELL MYELOMA
     Dosage: ?          OTHER FREQUENCY:QD FOR 4/8 DAYS;?
     Route: 048
     Dates: start: 20190402, end: 20190406
  11. VITAMIN B12 [Concomitant]
     Active Substance: CYANOCOBALAMIN

REACTIONS (1)
  - Pneumonia [None]
